FAERS Safety Report 25628225 (Version 3)
Quarter: 2025Q3

REPORT INFORMATION
  Report Type: Spontaneous
  Country: US (occurrence: US)
  Receive Date: 20250731
  Receipt Date: 20250814
  Transmission Date: 20251020
  Serious: No
  Sender: LUNDBECK
  Company Number: US-LUNDBECK-DKLU4017644

PATIENT
  Age: 66 Year
  Sex: Female
  Weight: 72.575 kg

DRUGS (3)
  1. VYEPTI [Suspect]
     Active Substance: EPTINEZUMAB-JJMR
     Indication: Vestibular migraine
     Route: 041
     Dates: start: 20250714
  2. LORAZEPAM [Concomitant]
     Active Substance: LORAZEPAM
     Indication: Vertigo
  3. LEVOTHYROXINE [Concomitant]
     Active Substance: LEVOTHYROXINE
     Indication: Product used for unknown indication

REACTIONS (4)
  - Adverse drug reaction [Recovering/Resolving]
  - Nasopharyngitis [Recovering/Resolving]
  - Hot flush [Recovering/Resolving]
  - Therapeutic response delayed [Not Recovered/Not Resolved]

NARRATIVE: CASE EVENT DATE: 20250701
